FAERS Safety Report 5052802-9 (Version None)
Quarter: 2006Q3

REPORT INFORMATION
  Report Type: 
  Country: None (occurrence: None)
  Receive Date: 20060717
  Receipt Date: 20050310
  Transmission Date: 20061208
  Serious: Yes (Hospitalization)
  Sender: FDA-Public Use
  Company Number: US-BRISTOL-MYERS SQUIBB COMPANY-12894028

PATIENT
  Age: 67 Year
  Sex: Female

DRUGS (4)
  1. ERBITUX [Suspect]
     Indication: COLORECTAL CANCER
     Dosage: INITIAL TX DATE: 04-OCT-04. DRUG DISCONTINUED
     Route: 042
     Dates: start: 20050209, end: 20050209
  2. OXALIPLATIN [Suspect]
     Indication: COLORECTAL CANCER
     Dosage: INITIAL TX DATE: 04-OCT-04. DRUG DISCONTINUED
     Route: 042
     Dates: start: 20050207, end: 20050207
  3. FLUOROURACIL [Suspect]
     Indication: COLORECTAL CANCER
     Dosage: INITIAL TX DATE: 04-OCT-04. DRUG DISCONTINUED
     Route: 042
     Dates: start: 20050207, end: 20050207
  4. LEUCOVORIN CALCIUM [Suspect]
     Indication: COLORECTAL CANCER
     Dosage: INITIAL TX DATE: 04-OCT-04. DRUG DISCONTINUED
     Route: 042
     Dates: start: 20050207, end: 20050207

REACTIONS (2)
  - FUNGAEMIA [None]
  - PYREXIA [None]
